FAERS Safety Report 8444781-9 (Version None)
Quarter: 2012Q2

REPORT INFORMATION
  Report Type: 
  Country: None (occurrence: None)
  Receive Date: 20120323
  Receipt Date: 20111020
  Transmission Date: 20120825
  Serious: Yes (Hospitalization)
  Sender: FDA-Public Use
  Company Number: 163-21880-11082306

PATIENT
  Age: 81 Year
  Sex: Male

DRUGS (4)
  1. VELCADE [Concomitant]
  2. REVLIMID [Suspect]
     Indication: MULTIPLE MYELOMA
     Dosage: 25 MG, DAILY FOR 21 DAYS OF 28 DAY CYCLE, PO, 25 MG, DAILY FOR 21 DAYS OF 28 DAY CYCLE, PO
     Route: 048
     Dates: start: 20110901
  3. REVLIMID [Suspect]
     Indication: MULTIPLE MYELOMA
     Dosage: 25 MG, DAILY FOR 21 DAYS OF 28 DAY CYCLE, PO, 25 MG, DAILY FOR 21 DAYS OF 28 DAY CYCLE, PO
     Route: 048
     Dates: start: 20110630, end: 20110702
  4. ZOFRAN [Concomitant]

REACTIONS (3)
  - DIVERTICULITIS [None]
  - DIARRHOEA [None]
  - CONSTIPATION [None]
